FAERS Safety Report 5496685-1 (Version None)
Quarter: 2007Q4

REPORT INFORMATION
  Report Type: 
  Country: None (occurrence: None)
  Receive Date: 20071025
  Receipt Date: 20070720
  Transmission Date: 20080405
  Serious: No
  Sender: FDA-Public Use
  Company Number: A0661324A

PATIENT
  Age: 46 Year
  Sex: Female
  Weight: 63.6 kg

DRUGS (3)
  1. ADVAIR DISKUS 100/50 [Suspect]
     Indication: ASTHMA
     Route: 055
     Dates: start: 20070301, end: 20070701
  2. ANTIBIOTIC [Concomitant]
  3. SINGULAIR [Concomitant]

REACTIONS (2)
  - MOUTH ULCERATION [None]
  - TOOTH INJURY [None]
